FAERS Safety Report 21591843 (Version 1)
Quarter: 2022Q4

REPORT INFORMATION
  Report Type: Spontaneous
  Country: NO (occurrence: NO)
  Receive Date: 20221114
  Receipt Date: 20221114
  Transmission Date: 20230113
  Serious: Yes (Disabling, Other)
  Sender: FDA-Public Use
  Company Number: NO-ORGANON-O2208NOR002022

PATIENT
  Sex: Female

DRUGS (4)
  1. METFORMIN [Suspect]
     Active Substance: METFORMIN HYDROCHLORIDE
     Indication: Polycystic ovaries
     Dosage: UNK
     Route: 065
     Dates: start: 202103
  2. PROSCAR [Suspect]
     Active Substance: FINASTERIDE
     Indication: Polycystic ovaries
     Dosage: 2.5 MILLIGRAM
     Route: 048
     Dates: start: 20210311, end: 20210405
  3. PROSCAR [Suspect]
     Active Substance: FINASTERIDE
     Indication: Hirsutism
  4. SPIRONOLACTONE [Suspect]
     Active Substance: SPIRONOLACTONE
     Indication: Polycystic ovaries
     Dosage: UNK
     Route: 065
     Dates: start: 202103

REACTIONS (4)
  - Depression suicidal [Not Recovered/Not Resolved]
  - Product prescribing issue [Unknown]
  - Product use issue [Unknown]
  - Product use in unapproved indication [Unknown]

NARRATIVE: CASE EVENT DATE: 20210311
